FAERS Safety Report 4802727-6 (Version None)
Quarter: 2005Q4

REPORT INFORMATION
  Report Type: 
  Country: None (occurrence: None)
  Receive Date: 20051014
  Receipt Date: 20040929
  Transmission Date: 20060501
  Serious: Yes (Life-Threatening)
  Sender: FDA-Public Use
  Company Number: 04P-163-0275438-00

PATIENT
  Age: 25 Year
  Sex: Male

DRUGS (5)
  1. KALETRA [Suspect]
     Indication: HIV INFECTION
     Dosage: 1600 MG, 1 IN 1 D, PER ORAL
     Route: 048
     Dates: start: 20040326, end: 20040909
  2. ZERIT XR [Suspect]
     Indication: HIV INFECTION
     Dosage: 100 MG, 1 IN 1 D, PER ORAL
     Route: 048
     Dates: start: 20040326, end: 20040909
  3. SERTRALINE HYDROCHLORIDE [Concomitant]
  4. IBUPROFEN [Concomitant]
  5. EMTRICITABINE [Suspect]
     Dosage: 200 MG, 1 IN 1 D, PER ORAL
     Dates: start: 20040326, end: 20040909

REACTIONS (1)
  - ALANINE AMINOTRANSFERASE INCREASED [None]
